FAERS Safety Report 7241777-X (Version None)
Quarter: 2011Q1

REPORT INFORMATION
  Report Type: 
  Country: None (occurrence: None)
  Receive Date: 20110124
  Receipt Date: 20110119
  Transmission Date: 20110831
  Serious: Yes (Death)
  Sender: FDA-Public Use
  Company Number: KR-ASTRAZENECA-2011SE03376

PATIENT
  Age: 72 Year
  Sex: Male

DRUGS (5)
  1. ALDACTONE [Suspect]
     Indication: POSTOPERATIVE CARE
     Route: 065
  2. LASIX [Suspect]
     Indication: POSTOPERATIVE CARE
     Route: 065
  3. PLETAL [Suspect]
     Indication: POSTOPERATIVE CARE
     Route: 065
  4. CRESTOR [Suspect]
     Indication: POSTOPERATIVE CARE
     Route: 048
     Dates: start: 20070506, end: 20070506
  5. MAGMIL [Suspect]
     Indication: POSTOPERATIVE CARE
     Route: 065

REACTIONS (2)
  - SUDDEN DEATH [None]
  - DEATH [None]
